FAERS Safety Report 15343395 (Version 6)
Quarter: 2019Q1

REPORT INFORMATION
  Report Type: Report from Study
  Country: ZA (occurrence: ZA)
  Receive Date: 20180903
  Receipt Date: 20190120
  Transmission Date: 20190417
  Serious: Yes (Hospitalization, Other)
  Sender: FDA-Public Use
  Company Number: ZA-BRISTOL-MYERS SQUIBB COMPANY-BMS-2018-059366

PATIENT
  Age: 75 Year
  Sex: Female

DRUGS (3)
  1. ABATACEPT [Suspect]
     Active Substance: ABATACEPT
     Indication: RHEUMATOID ARTHRITIS
     Dosage: 125 MG, QWK
     Route: 058
     Dates: start: 201710
  2. PREDNISONE. [Concomitant]
     Active Substance: PREDNISONE
     Indication: RHEUMATOID ARTHRITIS
     Dosage: 5 MG, QD
     Route: 048
  3. ELTROXIN [Concomitant]
     Active Substance: LEVOTHYROXINE
     Indication: HYPOTHYROIDISM
     Dosage: 0.1 MG, UNK
     Route: 048

REACTIONS (6)
  - Intraductal papilloma of breast [Recovered/Resolved]
  - Pain in extremity [Unknown]
  - Drug ineffective [Unknown]
  - Breast mass [Recovering/Resolving]
  - Arthralgia [Unknown]
  - Breast cancer [Unknown]

NARRATIVE: CASE EVENT DATE: 20180821
